FAERS Safety Report 4751220-8 (Version None)
Quarter: 2005Q3

REPORT INFORMATION
  Report Type: 
  Country: None (occurrence: None)
  Receive Date: 20050824
  Receipt Date: 20050805
  Transmission Date: 20060218
  Serious: Yes (Hospitalization)
  Sender: FDA-Public Use
  Company Number: US-BRISTOL-MYERS SQUIBB COMPANY-13064530

PATIENT
  Age: 68 Year
  Sex: Female

DRUGS (16)
  1. CETUXIMAB [Suspect]
     Indication: LUNG CANCER METASTATIC
     Route: 042
     Dates: start: 20050721, end: 20050721
  2. CARBOPLATIN [Suspect]
     Indication: LUNG CANCER METASTATIC
     Dosage: AUC = 6
     Route: 042
  3. DOCETAXEL [Suspect]
     Indication: NON-SMALL CELL LUNG CANCER
     Route: 042
  4. OXYGEN [Concomitant]
     Dates: start: 20050513
  5. ALBUTEROL [Concomitant]
     Dates: start: 20050515
  6. BUMEX [Concomitant]
     Dates: start: 20050714, end: 20050728
  7. POTASSIUM CHLORIDE [Concomitant]
     Dates: start: 20050714, end: 20050728
  8. CENTRUM [Concomitant]
     Dates: start: 19900101
  9. OS-CAL + D [Concomitant]
     Dates: start: 19990101
  10. GARLIC [Concomitant]
     Dates: start: 20030101
  11. AMBIEN [Concomitant]
     Dates: start: 20030401
  12. SYNTHROID [Concomitant]
     Dates: start: 19930101
  13. ALDOMET [Concomitant]
     Dates: start: 19930101
  14. PREVACID [Concomitant]
     Dates: start: 20030101
  15. DEXAMETHASONE [Concomitant]
     Dates: start: 20050710, end: 20050715
  16. BENADRYL [Concomitant]
     Dates: start: 20050721, end: 20050721

REACTIONS (1)
  - RENAL FAILURE [None]
